FAERS Safety Report 10013039 (Version 1)
Quarter: 2014Q1

REPORT INFORMATION
  Report Type: Spontaneous
  Country: GB (occurrence: GB)
  Receive Date: 20140314
  Receipt Date: 20140314
  Transmission Date: 20141002
  Serious: Yes (Hospitalization)
  Sender: FDA-Public Use
  Company Number: GB-TEVA-467448ISR

PATIENT
  Age: 93 Year
  Sex: Female

DRUGS (8)
  1. HALOPERIDOL [Suspect]
     Indication: AGITATION
     Dosage: 2 ML DAILY; 2ML AT NIGHT INCREASED TO 2ML TWICE DAILY
     Route: 048
     Dates: start: 20140219
  2. HALOPERIDOL [Suspect]
     Indication: AGITATION
     Dosage: 4 ML DAILY; 2ML AT NIGHT INCREASED TO 2ML TWICE DAILY
     Route: 048
     Dates: end: 20140221
  3. AMLODIPINE [Concomitant]
  4. ASPIRIN [Concomitant]
  5. BISOPROLOL [Concomitant]
  6. DONEPEZIL [Concomitant]
  7. FERROUS FUMARATE [Concomitant]
  8. MOXONIDINE [Concomitant]

REACTIONS (1)
  - Unresponsive to stimuli [Recovered/Resolved]
